FAERS Safety Report 8449583-5 (Version None)
Quarter: 2012Q2

REPORT INFORMATION
  Report Type: 
  Country: None (occurrence: None)
  Receive Date: 20120620
  Receipt Date: 20120612
  Transmission Date: 20120825
  Serious: Yes (Hospitalization)
  Sender: FDA-Public Use
  Company Number: GB-BIOGENIDEC-2012BI011285

PATIENT
  Age: 31 Year
  Sex: Female

DRUGS (5)
  1. VALPROIC ACID [Concomitant]
     Indication: EPILEPSY
  2. PROPRANOLOL [Concomitant]
     Indication: EPILEPSY
  3. ZOPICLONE [Concomitant]
     Indication: EPILEPSY
  4. TYSABRI [Suspect]
     Indication: MULTIPLE SCLEROSIS
     Route: 042
     Dates: start: 20081210
  5. MIRTAZAPINE [Concomitant]

REACTIONS (1)
  - EPILEPSY [None]
